FAERS Safety Report 23743607 (Version 10)
Quarter: 2025Q4

REPORT INFORMATION
  Report Type: Report from Study
  Country: US (occurrence: US)
  Receive Date: 20240415
  Receipt Date: 20251218
  Transmission Date: 20260117
  Serious: Yes (Other)
  Sender: TAKEDA
  Company Number: US-TAKEDA-US202027558

PATIENT
  Age: 69 Year
  Sex: Female
  Weight: 77 kg

DRUGS (4)
  1. HUMAN IMMUNOGLOBULIN G [Suspect]
     Active Substance: HUMAN IMMUNOGLOBULIN G
     Indication: Primary immunodeficiency syndrome
     Dosage: UNK
  2. HYQVIA [Suspect]
     Active Substance: HUMAN IMMUNOGLOBULIN G\HYALURONIDASE (HUMAN RECOMBINANT)
     Indication: Immunodeficiency common variable
     Dosage: 50 GRAM
  3. CUVITRU [Suspect]
     Active Substance: HUMAN IMMUNOGLOBULIN G
     Indication: Primary immunodeficiency syndrome
     Dosage: 24 GRAM, Q2WEEKS
  4. CUVITRU [Suspect]
     Active Substance: HUMAN IMMUNOGLOBULIN G
     Indication: Immunodeficiency common variable
     Dosage: UNK

REACTIONS (32)
  - Hypertrophic cardiomyopathy [Unknown]
  - Colitis [Unknown]
  - Infection [Unknown]
  - Gastrointestinal disorder [Recovering/Resolving]
  - Ear disorder [Unknown]
  - Ear haemorrhage [Unknown]
  - Tympanic membrane perforation [Unknown]
  - Ankle fracture [Unknown]
  - Sinus disorder [Unknown]
  - Fall [Unknown]
  - Infusion related reaction [Unknown]
  - Blood immunoglobulin G increased [Unknown]
  - Alopecia [Unknown]
  - Vitiligo [Unknown]
  - Ear infection [Unknown]
  - Candida infection [Unknown]
  - COVID-19 [Unknown]
  - Limb injury [Unknown]
  - Irritable bowel syndrome [Unknown]
  - Miliaria [Unknown]
  - Fibromyalgia [Recovered/Resolved]
  - Depression [Unknown]
  - Device infusion issue [Unknown]
  - Weight decreased [Unknown]
  - Sinusitis [Recovered/Resolved]
  - Asthma [Unknown]
  - Asthenia [Unknown]
  - Fatigue [Unknown]
  - Urticaria [Unknown]
  - Gastrointestinal bacterial infection [Unknown]
  - Incorrect dose administered [Unknown]
  - Product availability issue [Unknown]

NARRATIVE: CASE EVENT DATE: 20250328
